FAERS Safety Report 8405486-3 (Version None)
Quarter: 2012Q2

REPORT INFORMATION
  Report Type: 
  Country: None (occurrence: None)
  Receive Date: 20120604
  Receipt Date: 20120523
  Transmission Date: 20120825
  Serious: Yes (Other)
  Sender: FDA-Public Use
  Company Number: CH-BIOGENIDEC-2012BI018581

PATIENT
  Age: 50 Year
  Sex: Female

DRUGS (3)
  1. AVONEX [Suspect]
     Indication: MULTIPLE SCLEROSIS
     Route: 030
     Dates: start: 20040601, end: 20120318
  2. LYRICA [Concomitant]
     Indication: PAIN
     Route: 048
     Dates: start: 20120215, end: 20120321
  3. IBUPROFEN TABLETS [Concomitant]
     Route: 048
     Dates: start: 20010601, end: 20120318

REACTIONS (4)
  - INFLUENZA LIKE ILLNESS [None]
  - LYMPHOCYTIC LEUKAEMIA [None]
  - CHRONIC LEUKAEMIA [None]
  - LYMPHOCYTOSIS [None]
